FAERS Safety Report 19394277 (Version 1)
Quarter: 2021Q2

REPORT INFORMATION
  Report Type: Spontaneous
  Country: US (occurrence: US)
  Receive Date: 20210609
  Receipt Date: 20210609
  Transmission Date: 20210717
  Serious: No
  Sender: FDA-Public Use
  Company Number: US-TEVA-2021-US-1919216

PATIENT
  Age: 85 Year
  Sex: Male

DRUGS (1)
  1. CARBIDOPA AND LEVODOPA TEVA [Suspect]
     Active Substance: CARBIDOPA\LEVODOPA
     Indication: PARKINSON^S DISEASE
     Dosage: STRENGTH: 25 MG / 100 MG, 10 PILLS / DAY
     Route: 065
     Dates: start: 202105

REACTIONS (1)
  - Drug ineffective [Unknown]

NARRATIVE: CASE EVENT DATE: 202105
